FAERS Safety Report 5875459-3 (Version None)
Quarter: 2008Q3

REPORT INFORMATION
  Report Type: 
  Country: None (occurrence: None)
  Receive Date: 20080904
  Receipt Date: 20080819
  Transmission Date: 20090109
  Serious: Yes (Hospitalization)
  Sender: FDA-Public Use
  Company Number: 8036084

PATIENT
  Age: 7 Year
  Sex: Female

DRUGS (10)
  1. PREDNISOLONE [Suspect]
     Indication: EVANS SYNDROME
  2. PREDNISOLONE [Suspect]
     Indication: EVANS SYNDROME
  3. PREDNISOLONE [Suspect]
     Indication: EVANS SYNDROME
  4. CYCLOSPORINE [Suspect]
     Indication: EVANS SYNDROME
  5. MYCOPHENOLATE MOFETIL [Suspect]
     Indication: EVANS SYNDROME
  6. IMMUNE GLOBULIN INTRAVENOUS (HUMAN) [Suspect]
     Indication: EVANS SYNDROME
     Dosage: IV
     Route: 042
  7. RITUXIMAB [Suspect]
     Indication: EVANS SYNDROME
  8. RITUXIMAB [Suspect]
     Indication: LYMPHOPROLIFERATIVE DISORDER
  9. RITUXIMAB [Suspect]
     Indication: EVANS SYNDROME
     Dosage: 375 MG/M2 1/W
  10. RITUXIMAB [Suspect]
     Indication: LYMPHOPROLIFERATIVE DISORDER
     Dosage: 375 MG/M2 1/W

REACTIONS (9)
  - ANOREXIA [None]
  - BLOOD PRESSURE SYSTOLIC DECREASED [None]
  - COUGH [None]
  - DILATATION VENTRICULAR [None]
  - LYMPHOPROLIFERATIVE DISORDER [None]
  - OXYGEN SATURATION DECREASED [None]
  - PULMONARY HYPERTENSION [None]
  - SPLENECTOMY [None]
  - TRICUSPID VALVE INCOMPETENCE [None]
